FAERS Safety Report 22168233 (Version 2)
Quarter: 2023Q2

REPORT INFORMATION
  Report Type: Spontaneous
  Country: US (occurrence: US)
  Receive Date: 20230403
  Receipt Date: 20230406
  Transmission Date: 20230722
  Serious: Yes (Other)
  Sender: FDA-Public Use
  Company Number: US-APIL-2310336US

PATIENT
  Sex: Male

DRUGS (5)
  1. RAPAFLO [Suspect]
     Active Substance: SILODOSIN
     Indication: Product used for unknown indication
  2. ORGOVYX [Suspect]
     Active Substance: RELUGOLIX
     Indication: Prostate cancer
     Dosage: 120 MG, QD
     Route: 048
     Dates: start: 20221115
  3. ORGOVYX [Suspect]
     Active Substance: RELUGOLIX
     Dosage: UNK
     Route: 048
  4. ORGOVYX [Suspect]
     Active Substance: RELUGOLIX
     Dosage: UNK
     Route: 048
  5. FLOMAX [Suspect]
     Active Substance: TAMSULOSIN HYDROCHLORIDE
     Indication: Dysuria
     Dates: start: 20221129

REACTIONS (16)
  - Electrocardiogram abnormal [Unknown]
  - Aphasia [Not Recovered/Not Resolved]
  - Mental impairment [Unknown]
  - Male genital atrophy [Recovering/Resolving]
  - Dizziness [Unknown]
  - Hot flush [Not Recovered/Not Resolved]
  - Loss of libido [Unknown]
  - Constipation [Unknown]
  - Fatigue [Unknown]
  - Weight increased [Unknown]
  - Bone pain [Unknown]
  - Amnesia [Unknown]
  - Gingivitis [Unknown]
  - Dysuria [Recovering/Resolving]
  - Pain in extremity [Recovered/Resolved]
  - Drug hypersensitivity [Unknown]

NARRATIVE: CASE EVENT DATE: 20230112
